FAERS Safety Report 10216935 (Version 2)
Quarter: 2014Q2

REPORT INFORMATION
  Report Type: Spontaneous
  Country: US (occurrence: US)
  Receive Date: 20140604
  Receipt Date: 20140620
  Transmission Date: 20141212
  Serious: Yes (Hospitalization)
  Sender: FDA-Public Use
  Company Number: US-GLAXOSMITHKLINE-A1073063A

PATIENT
  Age: 67 Year
  Sex: Female

DRUGS (2)
  1. MEPRON [Suspect]
     Indication: PRODUCT USED FOR UNKNOWN INDICATION
     Route: 065
     Dates: start: 20110224
  2. VESICARE [Concomitant]
     Dates: start: 20110224

REACTIONS (3)
  - Drug administration error [Not Recovered/Not Resolved]
  - Lung transplant [Unknown]
  - Investigation [Unknown]
